FAERS Safety Report 11122524 (Version 1)
Quarter: 2015Q2

REPORT INFORMATION
  Report Type: Spontaneous
  Country: US (occurrence: US)
  Receive Date: 20150519
  Receipt Date: 20150519
  Transmission Date: 20150821
  Serious: No
  Sender: FDA-Public Use
  Company Number: US-BAUSCH-SYM-2014-22853

PATIENT
  Sex: Female

DRUGS (8)
  1. PRIMIDONE. [Interacting]
     Active Substance: PRIMIDONE
     Indication: CHRONIC MYELOID LEUKAEMIA
  2. SPRYCEL [Interacting]
     Active Substance: DASATINIB
     Indication: CHRONIC MYELOID LEUKAEMIA
  3. NEURONTIN [Suspect]
     Active Substance: GABAPENTIN
     Indication: TREMOR
  4. GLEEVEC [Suspect]
     Active Substance: IMATINIB MESYLATE
     Indication: TREMOR
  5. SPRYCEL [Interacting]
     Active Substance: DASATINIB
     Indication: TREMOR
  6. GLEEVEC [Suspect]
     Active Substance: IMATINIB MESYLATE
     Indication: CHRONIC MYELOID LEUKAEMIA
  7. NEURONTIN [Suspect]
     Active Substance: GABAPENTIN
     Indication: CHRONIC MYELOID LEUKAEMIA
  8. PRIMIDONE. [Interacting]
     Active Substance: PRIMIDONE
     Indication: TREMOR

REACTIONS (2)
  - Drug ineffective [Unknown]
  - Drug interaction [Unknown]
